FAERS Safety Report 11351527 (Version 1)
Quarter: 2015Q3

REPORT INFORMATION
  Report Type: Spontaneous
  Country: US (occurrence: US)
  Receive Date: 20150807
  Receipt Date: 20150807
  Transmission Date: 20151125
  Serious: No
  Sender: FDA-Public Use
  Company Number: US-JNJFOC-20150319371

PATIENT
  Age: 70 Year
  Sex: Female
  Weight: 68.04 kg

DRUGS (22)
  1. VITAMIN E [Concomitant]
     Active Substance: .ALPHA.-TOCOPHEROL
     Indication: GENERAL PHYSICAL CONDITION
     Dosage: 30 YEARS
     Route: 065
  2. MAGNESIUM [Concomitant]
     Active Substance: MAGNESIUM
     Indication: GENERAL PHYSICAL CONDITION
     Dosage: 30 YEARS
     Route: 065
  3. VITAMIN K [Concomitant]
     Active Substance: PHYTONADIONE
     Indication: GENERAL PHYSICAL CONDITION
     Dosage: 30 YEARS
     Route: 065
  4. COQ10 [Concomitant]
     Active Substance: UBIDECARENONE
     Indication: OXYGEN SUPPLEMENTATION
     Dosage: 30 YEARS
     Route: 065
  5. RED YEAST RICE EXTRACT [Concomitant]
     Indication: BLOOD CHOLESTEROL
     Dosage: 30 YEARS
     Route: 065
  6. BIOTIN [Concomitant]
     Active Substance: BIOTIN
     Indication: HAIR DISORDER
     Dosage: 2 MONTHS
     Route: 065
  7. WOMENS ROGAINE [Suspect]
     Active Substance: MINOXIDIL
     Route: 061
  8. WOMENS ROGAINE [Suspect]
     Active Substance: MINOXIDIL
     Indication: ALOPECIA
     Dosage: DOSING DROPPER, TWICE
     Route: 061
  9. PREMARIN [Concomitant]
     Active Substance: ESTROGENS, CONJUGATED
     Indication: BLOOD OESTROGEN
     Dosage: 3 YEARS
     Route: 065
  10. ACIDOPHILUS [Concomitant]
     Active Substance: LACTOBACILLUS ACIDOPHILUS
     Indication: GENERAL PHYSICAL CONDITION
     Dosage: 30 YEARS
     Route: 065
  11. CALCIUM [Concomitant]
     Active Substance: CALCIUM
     Indication: GENERAL PHYSICAL CONDITION
     Dosage: 30 YEARS
     Route: 065
  12. MULTIVITAMINS [Concomitant]
     Active Substance: VITAMINS
     Indication: GENERAL PHYSICAL CONDITION
     Dosage: 30 YEARS ONCE PER
     Route: 065
  13. ESTER C [Concomitant]
     Indication: GENERAL PHYSICAL CONDITION
     Dosage: 30 YEARS
     Route: 065
  14. PECTIN [Concomitant]
     Active Substance: PECTIN
     Indication: GENERAL PHYSICAL CONDITION
     Dosage: 30 YEARS
     Route: 065
  15. AMINO ACID [Concomitant]
     Indication: GENERAL PHYSICAL CONDITION
     Dosage: 30 YEARS
     Route: 065
  16. VITAMIN D3 [Concomitant]
     Active Substance: CHOLECALCIFEROL
     Indication: GENERAL PHYSICAL CONDITION
     Route: 065
  17. GINKO BILOBA [Concomitant]
     Active Substance: GINKGO
     Indication: MEMORY IMPAIRMENT
     Dosage: 30 YEARS
     Route: 065
  18. BIOTIN [Concomitant]
     Active Substance: BIOTIN
     Indication: NAIL DISORDER
     Dosage: 2 MONTHS
     Route: 065
  19. FISH OIL [Concomitant]
     Active Substance: FISH OIL
     Indication: GENERAL PHYSICAL CONDITION
     Dosage: 30 YEARS
     Route: 065
  20. LYSINE [Concomitant]
     Active Substance: LYSINE
     Indication: GENERAL PHYSICAL CONDITION
     Dosage: 30 YEARS
     Route: 065
  21. MELATONIN [Concomitant]
     Active Substance: MELATONIN
     Indication: SLEEP DISORDER
     Dosage: 30 YEARS
     Route: 065
  22. VITAMIN B12 [Concomitant]
     Active Substance: CYANOCOBALAMIN
     Indication: NERVOUSNESS
     Dosage: 30 YEARS
     Route: 065

REACTIONS (5)
  - Hair disorder [Recovering/Resolving]
  - Discomfort [Recovering/Resolving]
  - Hair colour changes [Recovering/Resolving]
  - Hair texture abnormal [Recovering/Resolving]
  - Trichorrhexis [Recovering/Resolving]
